FAERS Safety Report 4376402-9 (Version None)
Quarter: 2004Q2

REPORT INFORMATION
  Report Type: 
  Country: None (occurrence: None)
  Receive Date: 20040608
  Receipt Date: 20040528
  Transmission Date: 20050107
  Serious: Yes (Disabling)
  Sender: FDA-Public Use
  Company Number: 002#4#2004-00127

PATIENT
  Age: 40 Year
  Sex: Male

DRUGS (1)
  1. CHLORPHENIRAMINE MALEATE AND PHENYLPROPANOLAMINE HCL [Suspect]
     Indication: NASOPHARYNGITIS
     Route: 048
     Dates: start: 19970707, end: 19970710

REACTIONS (1)
  - CEREBROVASCULAR ACCIDENT [None]
